FAERS Safety Report 23850693 (Version 3)
Quarter: 2024Q2

REPORT INFORMATION
  Report Type: Report from Study
  Country: BR (occurrence: BR)
  Receive Date: 20240513
  Receipt Date: 20240531
  Transmission Date: 20240715
  Serious: Yes (Death, Hospitalization, Other)
  Sender: FDA-Public Use
  Company Number: BR-ABBVIE-5753595

PATIENT
  Age: 63 Year
  Sex: Male
  Weight: 123 kg

DRUGS (4)
  1. SKYRIZI [Suspect]
     Active Substance: RISANKIZUMAB-RZAA
     Indication: Psoriasis
     Route: 058
     Dates: start: 20190722
  2. LOSARTAN [Concomitant]
     Active Substance: LOSARTAN
     Indication: Hypertension
     Dosage: 100 MILLIGRAM?FORM STRENGTH: 50 MILLIGRAM
     Route: 048
     Dates: start: 20231208
  3. GLICLAZIDE [Concomitant]
     Active Substance: GLICLAZIDE
     Indication: Type 2 diabetes mellitus
     Dosage: 60 MILLIGRAM?FORM STRENGTH: 30 MILLIGRAM
     Route: 048
     Dates: start: 20231208
  4. METOPROLOL [Concomitant]
     Active Substance: METOPROLOL
     Indication: Hypertension
     Dosage: 50 MILLIGRAM?FORM STRENGTH: 50 MILLIGRAM
     Route: 048
     Dates: start: 20231208

REACTIONS (2)
  - Cerebral ischaemia [Fatal]
  - Acute myocardial infarction [Recovered/Resolved]

NARRATIVE: CASE EVENT DATE: 20240331
